FAERS Safety Report 12322307 (Version 2)
Quarter: 2016Q2

REPORT INFORMATION
  Report Type: Spontaneous
  Country: JP (occurrence: JP)
  Receive Date: 20160502
  Receipt Date: 20160603
  Transmission Date: 20160815
  Serious: Yes (Hospitalization)
  Sender: FDA-Public Use
  Company Number: JP-SA-2016SA083023

PATIENT
  Age: 67 Year
  Sex: Male

DRUGS (1)
  1. PLAVIX [Suspect]
     Active Substance: CLOPIDOGREL BISULFATE
     Indication: PROPHYLAXIS
     Route: 065

REACTIONS (34)
  - Proteinuria [Recovering/Resolving]
  - Blood lactate dehydrogenase increased [Recovered/Resolved]
  - Hypokinesia [Recovering/Resolving]
  - Ascites [Recovering/Resolving]
  - C-reactive protein increased [Recovered/Resolved]
  - Complement factor decreased [Recovered/Resolved]
  - Haemoglobin decreased [Recovering/Resolving]
  - Reticulocyte count increased [Recovering/Resolving]
  - Blood bilirubin increased [Recovering/Resolving]
  - Hyperbilirubinaemia [Recovering/Resolving]
  - Haematuria [Recovering/Resolving]
  - Nausea [Recovering/Resolving]
  - Blood pressure increased [Recovering/Resolving]
  - Thrombotic microangiopathy [Recovered/Resolved]
  - Chromaturia [Recovering/Resolving]
  - Fatigue [Recovering/Resolving]
  - Blood urea increased [Recovering/Resolving]
  - Complement factor C3 decreased [Recovered/Resolved]
  - Haptoglobin decreased [Recovering/Resolving]
  - Acute kidney injury [Recovering/Resolving]
  - Decreased appetite [Recovering/Resolving]
  - Generalised oedema [Recovering/Resolving]
  - Pleural effusion [Recovering/Resolving]
  - Thrombocytopenia [Recovering/Resolving]
  - Bilirubin conjugated increased [Recovering/Resolving]
  - Aspartate aminotransferase increased [Recovering/Resolving]
  - Oedema [Recovering/Resolving]
  - Cardiomegaly [Recovering/Resolving]
  - Purpura [Recovered/Resolved]
  - Haemolytic anaemia [Recovering/Resolving]
  - Red blood cell count decreased [Recovering/Resolving]
  - Oliguria [Recovering/Resolving]
  - Ocular icterus [Recovering/Resolving]
  - Blood chloride increased [Recovering/Resolving]
